FAERS Safety Report 19597535 (Version 1)
Quarter: 2021Q3

REPORT INFORMATION
  Report Type: Spontaneous
  Country: US (occurrence: US)
  Receive Date: 20210723
  Receipt Date: 20210723
  Transmission Date: 20211014
  Serious: No
  Sender: FDA-Public Use
  Company Number: US-CELGENEUS-USA-20210703258

PATIENT
  Age: 81 Year
  Sex: Male

DRUGS (1)
  1. POMALYST [Suspect]
     Active Substance: POMALIDOMIDE
     Indication: PLASMA CELL MYELOMA
     Dosage: 2 MILLIGRAM
     Route: 048
     Dates: start: 20210708

REACTIONS (5)
  - Diarrhoea [Unknown]
  - Swelling face [Unknown]
  - Vomiting [Unknown]
  - Swelling of eyelid [Unknown]
  - Nausea [Unknown]

NARRATIVE: CASE EVENT DATE: 202107
